FAERS Safety Report 8177974-9 (Version None)
Quarter: 2012Q1

REPORT INFORMATION
  Report Type: 
  Country: None (occurrence: None)
  Receive Date: 20120301
  Receipt Date: 20120224
  Transmission Date: 20120608
  Serious: Yes (Hospitalization, Other)
  Sender: FDA-Public Use
  Company Number: CA-AMGEN-CANSP2011054597

PATIENT
  Age: 59 Year
  Sex: Female

DRUGS (23)
  1. LORATADINE [Concomitant]
     Dosage: 10 ML, UNK
  2. NOVO-RABEPRAZOLE [Concomitant]
     Dosage: 20 MG, QD
     Route: 048
  3. NASONEX [Concomitant]
     Dosage: UNK UNK, BID
  4. BISOPROLOL FUMARATE [Concomitant]
     Dosage: 10 MG, QD
     Route: 048
  5. ENBREL [Suspect]
     Indication: PSORIATIC ARTHROPATHY
  6. PERINDOPRIL ERBUMINE [Concomitant]
     Dosage: UNK UNK, QD
     Route: 048
  7. ENBREL [Suspect]
     Indication: RHEUMATOID ARTHRITIS
     Dosage: 50 MG, QWK
     Route: 058
     Dates: start: 20090101, end: 20111101
  8. LASIX [Concomitant]
     Dosage: 3 UNK, UNK
  9. SLOW-K [Concomitant]
     Dosage: 8 ML, UNK
  10. TEMAZEPAM [Concomitant]
     Dosage: 30 ML, QD
  11. CALCIUM CARBONATE [Concomitant]
     Dosage: 600 MG, QD
     Route: 048
  12. ELAVIL [Concomitant]
     Dosage: UNK
  13. MORPHINE [Concomitant]
     Dosage: UNK
  14. ATIVAN [Concomitant]
     Dosage: 1 MG, TID
  15. AMLODIPINE [Concomitant]
     Dosage: 2.5 MG, QD
     Route: 048
  16. VITAMIN D [Concomitant]
     Dosage: 1000 IU, BID
  17. VENLAFAXINE [Concomitant]
     Dosage: 75 MG, QD
  18. SIMVASTATIN [Concomitant]
     Dosage: 40 MG, QD
     Route: 048
  19. DOCUSATE SODIUM [Concomitant]
     Dosage: 100 MG, UNK
  20. METFORMIN HCL [Concomitant]
     Dosage: 500 MG, UNK
  21. ARTHROTEC [Concomitant]
     Dosage: 200 MG, UNK
  22. DICLOFENAC SODIUM [Concomitant]
     Dosage: 10 ML, UNK
  23. PULMICORT [Concomitant]
     Dosage: UNK

REACTIONS (3)
  - HIP ARTHROPLASTY [None]
  - MALAISE [None]
  - SKIN CANCER [None]
